FAERS Safety Report 6414637-1 (Version None)
Quarter: 2009Q4

REPORT INFORMATION
  Report Type: 
  Country: None (occurrence: None)
  Receive Date: 20091026
  Receipt Date: 20091016
  Transmission Date: 20100525
  Serious: Yes (Hospitalization)
  Sender: FDA-Public Use
  Company Number: US-BIOGENIDEC-2009BI033448

PATIENT
  Age: 52 Year
  Sex: Female

DRUGS (1)
  1. TYSABRI [Suspect]
     Indication: MULTIPLE SCLEROSIS
     Route: 042
     Dates: start: 20070125

REACTIONS (8)
  - ASTHENIA [None]
  - BLADDER PROLAPSE [None]
  - CHEST PAIN [None]
  - DYSPNOEA [None]
  - GENITAL DISORDER FEMALE [None]
  - MULTIPLE SCLEROSIS RELAPSE [None]
  - OBSTRUCTIVE UROPATHY [None]
  - PAIN [None]
